FAERS Safety Report 15427377 (Version 13)
Quarter: 2020Q4

REPORT INFORMATION
  Report Type: Spontaneous
  Country: US (occurrence: US)
  Receive Date: 20180925
  Receipt Date: 20201223
  Transmission Date: 20210113
  Serious: Yes (Hospitalization, Other)
  Sender: FDA-Public Use
  Company Number: US-SA-2018SA266416

PATIENT

DRUGS (4)
  1. FABRAZYME [Suspect]
     Active Substance: AGALSIDASE BETA
     Dosage: 70 MG, QOW
     Route: 041
     Dates: end: 202011
  2. FABRAZYME [Suspect]
     Active Substance: AGALSIDASE BETA
     Indication: FABRY^S DISEASE
     Dosage: 75 MG, QW
     Route: 041
     Dates: start: 20151022, end: 201510
  3. FABRAZYME [Suspect]
     Active Substance: AGALSIDASE BETA
     Dosage: 10 MG, QW
     Route: 041
     Dates: start: 201510
  4. FABRAZYME [Suspect]
     Active Substance: AGALSIDASE BETA
     Dosage: 75 MG, QOW
     Route: 041
     Dates: start: 2020

REACTIONS (10)
  - Myocardial infarction [Unknown]
  - Migraine [Unknown]
  - Suspected COVID-19 [Unknown]
  - Gastric disorder [Unknown]
  - Hospitalisation [Unknown]
  - Weight increased [Unknown]
  - Illness [Unknown]
  - Malaise [Unknown]
  - Product dose omission issue [Unknown]
  - Inappropriate schedule of product administration [Unknown]

NARRATIVE: CASE EVENT DATE: 20151022
